FAERS Safety Report 7463766-2 (Version None)
Quarter: 2011Q2

REPORT INFORMATION
  Report Type: 
  Country: None (occurrence: None)
  Receive Date: 20110506
  Receipt Date: 20110427
  Transmission Date: 20111010
  Serious: Yes (Hospitalization, Other)
  Sender: FDA-Public Use
  Company Number: JP-ASTRAZENECA-2011SE24448

PATIENT
  Age: 82 Year
  Sex: Male
  Weight: 62 kg

DRUGS (9)
  1. ADOAIR [Concomitant]
     Indication: CHRONIC OBSTRUCTIVE PULMONARY DISEASE
     Route: 055
     Dates: end: 20100909
  2. EVIPROSTAT [Concomitant]
     Indication: BENIGN PROSTATIC HYPERPLASIA
     Dosage: DOSE UNKNOWN
     Route: 048
  3. KLARICID [Concomitant]
     Indication: BRONCHITIS
     Dosage: DOSE UNKNOWN
     Route: 048
     Dates: start: 20101202, end: 20101215
  4. FLIVAS [Concomitant]
     Indication: BENIGN PROSTATIC HYPERPLASIA
     Dosage: DOSE UNKNOWN
     Route: 048
  5. MUCODYNE [Concomitant]
     Indication: BRONCHITIS
     Dosage: DOSE UNKNOWN
     Route: 048
     Dates: start: 20101202, end: 20101215
  6. SPIRIVA [Concomitant]
     Indication: CHRONIC OBSTRUCTIVE PULMONARY DISEASE
     Dosage: DOSE UNKNOWN
     Route: 055
  7. SYMBICORT [Suspect]
     Indication: CHRONIC OBSTRUCTIVE PULMONARY DISEASE
     Dosage: 160/4.5 UG TWO INHALATION TWO TIMES A DAY
     Route: 055
     Dates: start: 20100909
  8. SULTANOL [Concomitant]
     Indication: CHRONIC OBSTRUCTIVE PULMONARY DISEASE
     Dosage: DOSE UNKNOWN, AS REQUIRED
     Route: 055
     Dates: start: 20100819
  9. INFLUENZA HA VACCINE [Concomitant]
     Indication: ANTIVIRAL PROPHYLAXIS
     Dosage: DOSE UNKNOWN
     Route: 058
     Dates: start: 20101112, end: 20101112

REACTIONS (1)
  - PROSTATE CANCER [None]
